FAERS Safety Report 7239484-2 (Version None)
Quarter: 2011Q1

REPORT INFORMATION
  Report Type: 
  Country: None (occurrence: None)
  Receive Date: 20110121
  Receipt Date: 20110117
  Transmission Date: 20110831
  Serious: Yes (Hospitalization)
  Sender: FDA-Public Use
  Company Number: US-RB-011681-10

PATIENT
  Age: 58 Year
  Sex: Male

DRUGS (2)
  1. SUBOXONE [Suspect]
     Indication: DRUG DEPENDENCE
     Route: 060
     Dates: start: 20100501
  2. SUBOXONE [Suspect]
     Indication: PRODUCT USED FOR UNKNOWN INDICATION
     Dosage: DOSAGE UNKNOWN AT THIS TIME.
     Route: 065

REACTIONS (27)
  - HEADACHE [None]
  - TREMOR [None]
  - VICTIM OF CRIME [None]
  - DRUG WITHDRAWAL SYNDROME [None]
  - GAIT DISTURBANCE [None]
  - BACK PAIN [None]
  - SUBSTANCE ABUSE [None]
  - NIGHTMARE [None]
  - COLD SWEAT [None]
  - CONTUSION [None]
  - DRUG INEFFECTIVE [None]
  - ROAD TRAFFIC ACCIDENT [None]
  - INFLUENZA [None]
  - HALLUCINATION, AUDITORY [None]
  - INSOMNIA [None]
  - MUSCLE TWITCHING [None]
  - MUSCULOSKELETAL STIFFNESS [None]
  - DRUG DEPENDENCE [None]
  - JOINT SPRAIN [None]
  - NIGHT SWEATS [None]
  - CHILLS [None]
  - FALL [None]
  - DECREASED APPETITE [None]
  - NASOPHARYNGITIS [None]
  - HYPERHIDROSIS [None]
  - WEIGHT DECREASED [None]
  - SKIN NECROSIS [None]
